FAERS Safety Report 8045654-6 (Version None)
Quarter: 2012Q1

REPORT INFORMATION
  Report Type: 
  Country: None (occurrence: None)
  Receive Date: 20120113
  Receipt Date: 20120109
  Transmission Date: 20120608
  Serious: Yes (Congenital Anomaly, Other)
  Sender: FDA-Public Use
  Company Number: US-PFIZER INC-2011105760

PATIENT
  Sex: Female
  Weight: 2.6 kg

DRUGS (11)
  1. VIOXX [Concomitant]
     Dosage: 50 MG ONCE EVERY DAY
     Route: 064
     Dates: start: 20030415
  2. AMBIEN [Concomitant]
     Dosage: 10 MG, AS NEEDED
     Route: 064
  3. ACETYLSALICYLIC ACID [Concomitant]
     Dosage: UNK, ONCE A DAY
     Route: 064
  4. NORPACE [Concomitant]
     Dosage: 100 MG, 2X/DAY
     Route: 064
  5. ZOLOFT [Suspect]
     Indication: EMOTIONAL DISTRESS
     Dosage: 50 MG, 1X/DAY (ONE EVERY DAY)
     Route: 064
     Dates: start: 19991021
  6. ACETAMINOPHEN [Concomitant]
     Dosage: UNK, EVERY NIGHT
     Route: 064
     Dates: start: 20030415
  7. MULTI-VITAMINS [Concomitant]
     Dosage: ONE TABLET DAILY
     Route: 064
  8. DIGOXIN [Concomitant]
     Dosage: 0.5 MG A DAY
     Route: 064
  9. ACETAMINOPHEN [Concomitant]
     Indication: PAIN
     Dosage: 325 MG, 2X/DAY
     Route: 064
  10. LOPRESSOR [Concomitant]
     Dosage: 625 MG, EVERY 6 HOURS
     Route: 064
  11. LANOXIN [Concomitant]
     Indication: ATRIAL FIBRILLATION
     Dosage: 0.25 MG, 1X/DAY
     Route: 064

REACTIONS (5)
  - HIP DYSPLASIA [None]
  - FOETAL EXPOSURE DURING PREGNANCY [None]
  - POOR WEIGHT GAIN NEONATAL [None]
  - CLEFT LIP AND PALATE [None]
  - ATRIAL SEPTAL DEFECT [None]
